FAERS Safety Report 13611861 (Version 1)
Quarter: 2017Q2

REPORT INFORMATION
  Report Type: Spontaneous
  Country: US (occurrence: US)
  Receive Date: 20170605
  Receipt Date: 20170605
  Transmission Date: 20170830
  Serious: Yes (Hospitalization, Other)
  Sender: FDA-Public Use
  Company Number: None

PATIENT
  Age: 29 Year
  Sex: Male
  Weight: 85.5 kg

DRUGS (4)
  1. SEREQUEL [Concomitant]
  2. LAMICTAL [Concomitant]
     Active Substance: LAMOTRIGINE
  3. GENERIC PAXIL [Suspect]
     Active Substance: PAROXETINE HYDROCHLORIDE
     Route: 048
     Dates: start: 20160301, end: 20160315
  4. LITHIUM. [Concomitant]
     Active Substance: LITHIUM

REACTIONS (4)
  - Suicidal ideation [None]
  - Judgement impaired [None]
  - Dissociation [None]
  - Depression [None]

NARRATIVE: CASE EVENT DATE: 20160301
